FAERS Safety Report 5218622-7 (Version None)
Quarter: 2007Q1

REPORT INFORMATION
  Report Type: 
  Country: None (occurrence: None)
  Receive Date: 20070122
  Receipt Date: 20070111
  Transmission Date: 20070707
  Serious: Yes (Death, Other)
  Sender: FDA-Public Use
  Company Number: GXKR2007BE00711

PATIENT
  Age: 4 Year
  Sex: Female

DRUGS (11)
  1. VINCRISTINE [Suspect]
     Indication: CHEMOTHERAPY
     Dosage: SEE IMAGE
  2. CARBOPLATIN [Suspect]
     Indication: CHEMOTHERAPY
     Dosage: 750 MG/M2, 2X,
  3. ETOPOSIDE [Suspect]
     Indication: CHEMOTHERAPY
     Dosage: 175 MG/M2, 3X,
  4. CISPLATIN [Suspect]
     Indication: CHEMOTHERAPY
     Dosage: SEE IMAGE
  5. DOXORUBICIN HCL [Suspect]
     Indication: CHEMOTHERAPY
     Dosage: SEE IMAGE
  6. CYCLOPHOSPHAMIDE [Suspect]
     Indication: CHEMOTHERAPY
     Dosage: SEE IMAGE
  7. MUSTINE (CHLORMETHINE) [Suspect]
     Indication: CHEMOTHERAPY
     Dosage: 2 MG/M2,
  8. DACARBAZINE [Suspect]
     Indication: CHEMOTHERAPY
     Dosage: 750 MG/M2,
  9. ONCOVIN [Suspect]
     Indication: CHEMOTHERAPY
     Dosage: 2 MG/M2,
  10. BUSULFAN (BUSULFAN) [Concomitant]
  11. MELPHALAN (MELPHALAN) [Concomitant]

REACTIONS (10)
  - ABDOMINAL NEOPLASM [None]
  - ACUTE MYELOMONOCYTIC LEUKAEMIA [None]
  - ADRENAL NEOPLASM [None]
  - BONE MARROW DISORDER [None]
  - BONE PAIN [None]
  - CANDIDIASIS [None]
  - CYTOGENETIC ANALYSIS ABNORMAL [None]
  - MEDIASTINUM NEOPLASM [None]
  - NEUROBLASTOMA RECURRENT [None]
  - PANCYTOPENIA [None]
